FAERS Safety Report 7796689-X (Version None)
Quarter: 2011Q3

REPORT INFORMATION
  Report Type: 
  Country: None (occurrence: None)
  Receive Date: 20110930
  Receipt Date: 20110923
  Transmission Date: 20111222
  Serious: Yes (Hospitalization)
  Sender: FDA-Public Use
  Company Number: AUR-APL-2011-05197

PATIENT
  Age: 48 Year
  Sex: Female

DRUGS (9)
  1. COUMADIN [Concomitant]
  2. COLACE (DOCUSATE SODIUM) [Concomitant]
  3. SYNTHROID (LEVOTHYROXIN SODIUM) [Concomitant]
  4. SENNA PLUS (SENNA ALEXANDRINA) [Concomitant]
  5. LAMOTRIGINE [Suspect]
     Indication: DEPRESSION
     Dosage: (100 MG)
     Dates: end: 20110825
  6. LAMOTRIGINE [Suspect]
     Indication: DEPRESSION
     Dosage: 100 MG (100 MG, 1 IN 1 D), ORAL
     Route: 048
     Dates: start: 20110826, end: 20110830
  7. COREG [Concomitant]
  8. RAMIPRIL [Concomitant]
  9. CELEXA [Concomitant]

REACTIONS (2)
  - BURNING SENSATION [None]
  - DRUG RASH WITH EOSINOPHILIA AND SYSTEMIC SYMPTOMS [None]
